FAERS Safety Report 9840172 (Version 1)
Quarter: 2014Q1

REPORT INFORMATION
  Report Type: Report from Study
  Country: US (occurrence: US)
  Receive Date: 20140124
  Receipt Date: 20140124
  Transmission Date: 20141002
  Serious: Yes (Hospitalization)
  Sender: FDA-Public Use
  Company Number: US-ROCHE-1334935

PATIENT
  Sex: Male
  Weight: 103.51 kg

DRUGS (16)
  1. XOLAIR [Suspect]
     Indication: ASTHMA
     Route: 058
  2. SINGULAIR [Concomitant]
     Route: 065
  3. NEXIUM [Concomitant]
     Route: 065
  4. NORVASC [Concomitant]
     Route: 065
  5. LIPITOR [Concomitant]
     Route: 065
  6. PROAIR (UNITED STATES) [Concomitant]
     Dosage: PRN
     Route: 065
  7. ALPRAZOLAM [Concomitant]
     Route: 065
  8. AMBIEN [Concomitant]
     Indication: INSOMNIA
     Dosage: PRN
     Route: 065
  9. CITALOPRAM HYDROBROMIDE [Concomitant]
     Route: 065
  10. ASPIRIN [Concomitant]
     Route: 065
  11. COLACE [Concomitant]
     Route: 065
  12. CYCLOBENZAPRINE [Concomitant]
     Route: 065
  13. FLONASE [Concomitant]
     Route: 065
  14. SYMBICORT [Concomitant]
     Route: 065
  15. COMBIVENT [Concomitant]
     Route: 065
  16. DULERA [Concomitant]
     Route: 048

REACTIONS (8)
  - Asthma [Unknown]
  - Chronic respiratory failure [Unknown]
  - Respiratory distress [Unknown]
  - Dyspnoea [Unknown]
  - Dyspnoea [Unknown]
  - Sleep apnoea syndrome [Unknown]
  - Cough [Unknown]
  - Wheezing [Unknown]
